FAERS Safety Report 8232276-7 (Version None)
Quarter: 2012Q1

REPORT INFORMATION
  Report Type: 
  Country: None (occurrence: None)
  Receive Date: 20120323
  Receipt Date: 20120318
  Transmission Date: 20120608
  Serious: Yes (Other)
  Sender: FDA-Public Use
  Company Number: GR-CUBIST-2012S1000128

PATIENT
  Age: 56 Day
  Sex: Female
  Weight: 2 kg

DRUGS (14)
  1. CUBICIN [Suspect]
     Indication: ENTEROCOCCAL INFECTION
     Route: 042
     Dates: start: 20100620, end: 20100625
  2. CUBICIN [Suspect]
     Route: 042
     Dates: start: 20100630
  3. GENTAMICIN [Concomitant]
     Indication: PREMATURE BABY
     Dates: start: 20100428, end: 20100505
  4. CIPROFLOXACIN [Concomitant]
     Indication: SEPSIS
     Dates: start: 20100610, end: 20100614
  5. CEFEPIME [Concomitant]
     Indication: SEPSIS
     Dates: start: 20100512, end: 20100522
  6. AMPICILLIN [Concomitant]
     Indication: PREMATURE BABY
     Dates: start: 20100428, end: 20100505
  7. CUBICIN [Suspect]
     Route: 042
     Dates: start: 20100625, end: 20100630
  8. LINEZOLID [Concomitant]
     Indication: ENTEROCOCCAL INFECTION
     Route: 065
     Dates: start: 20100614, end: 20100619
  9. GENTAMICIN [Concomitant]
     Indication: NEONATAL RESPIRATORY DISTRESS SYNDROME
     Dates: start: 20100428, end: 20100505
  10. CEFEPIME [Concomitant]
     Indication: NECROTISING COLITIS
     Dates: start: 20100512, end: 20100522
  11. SOLUTIONS FOR PARENTERAL NUTRITION [Concomitant]
     Indication: NECROTISING COLITIS
     Dosage: DOSE UNIT:U UNKNOWN
  12. CUBICIN [Suspect]
     Dosage: DOSE UNIT:U UNKNOWN
     Route: 065
     Dates: end: 20100808
  13. AMPICILLIN [Concomitant]
     Indication: NEONATAL RESPIRATORY DISTRESS SYNDROME
     Dates: start: 20100428, end: 20100505
  14. SOLUTIONS FOR PARENTERAL NUTRITION [Concomitant]
     Indication: SEPSIS
     Dosage: DOSE UNIT:U UNKNOWN

REACTIONS (2)
  - CHOLESTASIS [None]
  - ENDOCARDITIS [None]
